FAERS Safety Report 24823494 (Version 1)
Quarter: 2025Q1

REPORT INFORMATION
  Report Type: Spontaneous
  Country: US (occurrence: US)
  Receive Date: 20250109
  Receipt Date: 20250109
  Transmission Date: 20250408
  Serious: Yes (Hospitalization)
  Sender: HIKMA
  Company Number: US-HIKMA PHARMACEUTICALS-US-H14001-24-11243

PATIENT
  Age: 22 Year
  Sex: Female
  Weight: 97.1 kg

DRUGS (6)
  1. BRENTUXIMAB VEDOTIN [Suspect]
     Active Substance: BRENTUXIMAB VEDOTIN
     Indication: Lymphoma
     Dosage: 1.2 MG/KG CYCLIC, ONCE EVERY TWO WEEKS
     Route: 042
     Dates: start: 20240510, end: 20240622
  2. GEMCITABINE [Suspect]
     Active Substance: GEMCITABINE
     Indication: Hodgkin^s disease
     Route: 042
     Dates: start: 20240705, end: 20240912
  3. DOXORUBICIN HYDROCHLORIDE [Suspect]
     Active Substance: DOXORUBICIN HYDROCHLORIDE
     Indication: Hodgkin^s disease
     Route: 042
     Dates: start: 20240705, end: 20240912
  4. PEMBROLIZUMAB [Suspect]
     Active Substance: PEMBROLIZUMAB
     Indication: Hodgkin^s disease
     Dosage: 200 MILLIGRAM, 3W
     Route: 042
     Dates: start: 20240705, end: 20240912
  5. VINORELBINE [Suspect]
     Active Substance: VINORELBINE TARTRATE
     Indication: Hodgkin^s disease
     Route: 042
     Dates: start: 20240705, end: 20240912
  6. NEULASTA [Concomitant]
     Active Substance: PEGFILGRASTIM
     Indication: Hodgkin^s disease
     Route: 058
     Dates: start: 20240510, end: 20240912

REACTIONS (2)
  - Pneumonia [Recovered/Resolved]
  - Pyrexia [Recovered/Resolved]

NARRATIVE: CASE EVENT DATE: 20240919
